FAERS Safety Report 4789532-4 (Version None)
Quarter: 2005Q4

REPORT INFORMATION
  Report Type: 
  Country: None (occurrence: None)
  Receive Date: 20051005
  Receipt Date: 20051005
  Transmission Date: 20060501
  Serious: Yes (Life-Threatening, Hospitalization)
  Sender: FDA-Public Use
  Company Number: None

PATIENT
  Age: 58 Year
  Sex: Female

DRUGS (9)
  1. GLIMEPIRIDE [Suspect]
     Indication: DIABETES MELLITUS NON-INSULIN-DEPENDENT
     Dosage: 1 MG PO QD
     Route: 048
  2. ASPIRIN [Concomitant]
  3. LEVOTHYROXINE [Concomitant]
  4. METHADONE [Concomitant]
  5. FLUVASTATIN [Concomitant]
  6. ITRAZODONE [Concomitant]
  7. LORATADINE [Concomitant]
  8. ENALAPRIL [Concomitant]
  9. VENLAFAXINE HCL [Concomitant]

REACTIONS (5)
  - DIARRHOEA [None]
  - DISEASE RECURRENCE [None]
  - GASTROENTERITIS [None]
  - HYPOGLYCAEMIA [None]
  - VISION BLURRED [None]
